FAERS Safety Report 24281545 (Version 4)
Quarter: 2024Q4

REPORT INFORMATION
  Report Type: Spontaneous
  Country: US (occurrence: US)
  Receive Date: 20240904
  Receipt Date: 20241122
  Transmission Date: 20250115
  Serious: No
  Sender: ALKERMES
  Company Number: US-ALKERMES INC.-ALK-2024-002208

PATIENT
  Age: 58 Year
  Sex: Female
  Weight: 52.472 kg

DRUGS (2)
  1. VIVITROL [Suspect]
     Active Substance: NALTREXONE
     Indication: Alcoholism
     Dosage: 380 MILLIGRAM, QMO
     Route: 030
     Dates: start: 202306, end: 20240821
  2. VIVITROL [Suspect]
     Active Substance: NALTREXONE
     Dosage: 380 MILLIGRAM, Q28D
     Route: 030
     Dates: start: 2023

REACTIONS (3)
  - Road traffic accident [Recovered/Resolved]
  - Gait disturbance [Not Recovered/Not Resolved]
  - Foot operation [Recovering/Resolving]

NARRATIVE: CASE EVENT DATE: 20230917
